FAERS Safety Report 5008259-7 (Version None)
Quarter: 2006Q2

REPORT INFORMATION
  Report Type: 
  Country: None (occurrence: None)
  Receive Date: 20060523
  Receipt Date: 20060511
  Transmission Date: 20061013
  Serious: Yes (Other)
  Sender: FDA-Public Use
  Company Number: PHEH2006US06209

PATIENT
  Age: 64 Year
  Sex: Female

DRUGS (4)
  1. DIOVAN HCT [Suspect]
     Indication: HYPERTENSION
     Dosage: 1/2 OF 160MG VAL/12.5MG HCT, QD
     Dates: start: 20020101
  2. TOPROL-XL [Concomitant]
  3. WELCHOL [Concomitant]
  4. KLONOPIN [Concomitant]

REACTIONS (5)
  - BASAL CELL CARCINOMA [None]
  - SKIN PAPILLOMA [None]
  - SKIN SQUAMOUS CELL CARCINOMA SURGERY [None]
  - SOLAR ELASTOSIS [None]
  - SQUAMOUS CELL CARCINOMA [None]
